FAERS Safety Report 8080725-X (Version None)
Quarter: 2012Q1

REPORT INFORMATION
  Report Type: 
  Country: None (occurrence: None)
  Receive Date: 20120130
  Receipt Date: 20120125
  Transmission Date: 20120608
  Serious: Yes (Other)
  Sender: FDA-Public Use
  Company Number: PHHY2011JP111391

PATIENT
  Age: 17 Year
  Sex: Female

DRUGS (1)
  1. VOLTAREN [Suspect]
     Dosage: UNK
     Route: 048
     Dates: start: 20100830, end: 20101129

REACTIONS (2)
  - LIVER DISORDER [None]
  - ERYTHEMA [None]
